FAERS Safety Report 17671692 (Version 1)
Quarter: 2020Q2

REPORT INFORMATION
  Report Type: Other
  Country: US (occurrence: US)
  Receive Date: 20200415
  Receipt Date: 20200415
  Transmission Date: 20200713
  Serious: Yes (Other)
  Sender: FDA-Public Use
  Company Number: US-ALKERMES INC.-ALK-2019-002658

PATIENT
  Age: 44 Year
  Sex: Male

DRUGS (1)
  1. VIVITROL [Suspect]
     Active Substance: NALTREXONE
     Indication: ALCOHOLISM
     Dosage: 380 MG, QMO
     Route: 030
     Dates: start: 20190131

REACTIONS (8)
  - Injection site reaction [Unknown]
  - Product administered at inappropriate site [Unknown]
  - Wrong technique in product usage process [Unknown]
  - Injection site mass [Unknown]
  - Injection site extravasation [Unknown]
  - Injection site pain [Unknown]
  - Injection site swelling [Unknown]
  - Rash [Unknown]

NARRATIVE: CASE EVENT DATE: 20190131
